FAERS Safety Report 7733517-2 (Version None)
Quarter: 2011Q3

REPORT INFORMATION
  Report Type: 
  Country: None (occurrence: None)
  Receive Date: 20110907
  Receipt Date: 20110907
  Transmission Date: 20111222
  Serious: Yes (Other)
  Sender: FDA-Public Use
  Company Number: None

PATIENT
  Age: 39 Year
  Sex: Female
  Weight: 97.522 kg

DRUGS (1)
  1. CYMBALTA [Suspect]
     Indication: DEPRESSION
     Dosage: 60MG
     Route: 048
     Dates: start: 20080201, end: 20110831

REACTIONS (7)
  - DIARRHOEA [None]
  - IRRITABILITY [None]
  - WITHDRAWAL SYNDROME [None]
  - FEELING ABNORMAL [None]
  - FATIGUE [None]
  - ANGER [None]
  - NAUSEA [None]
